FAERS Safety Report 5185123-4 (Version None)
Quarter: 2006Q4

REPORT INFORMATION
  Report Type: 
  Country: None (occurrence: None)
  Receive Date: 20061220
  Receipt Date: 20060606
  Transmission Date: 20070319
  Serious: No
  Sender: FDA-Public Use
  Company Number: US-GLAXOSMITHKLINE-A0608011A

PATIENT
  Age: 56 Year
  Sex: Female

DRUGS (2)
  1. NICODERM CQ [Suspect]
  2. NICORETTE [Suspect]

REACTIONS (6)
  - APPLICATION SITE ERYTHEMA [None]
  - APPLICATION SITE PRURITUS [None]
  - APPLICATION SITE URTICARIA [None]
  - EMOTIONAL DISORDER [None]
  - HYPERSENSITIVITY [None]
  - NAUSEA [None]
